FAERS Safety Report 11606601 (Version 1)
Quarter: 2015Q4

REPORT INFORMATION
  Report Type: Spontaneous
  Country: US (occurrence: US)
  Receive Date: 20151007
  Receipt Date: 20151007
  Transmission Date: 20160304
  Serious: No
  Sender: FDA-Public Use
  Company Number: US-GLAXOSMITHKLINE-US2015GSK142457

PATIENT
  Age: 78 Year
  Sex: Female

DRUGS (14)
  1. OMEPRAZOLE CAPSULE [Concomitant]
     Active Substance: OMEPRAZOLE
  2. CHLORHEX GLU SOL [Concomitant]
  3. FUROSEMIDE TABLET [Concomitant]
  4. QVAR [Concomitant]
     Active Substance: BECLOMETHASONE DIPROPIONATE
  5. SPIRONOLACTON TABLET [Concomitant]
  6. JANTOVEN TABLET [Concomitant]
  7. SERTRALINE TABLET [Concomitant]
     Active Substance: SERTRALINE HYDROCHLORIDE
  8. BUPROPION SR PROLONGED-RELEASE TABLET [Concomitant]
     Active Substance: BUPROPION
  9. HYDROCODONE + APAP TABLET [Concomitant]
  10. VENTOLIN HFA [Concomitant]
     Active Substance: ALBUTEROL SULFATE
  11. VOTRIENT [Suspect]
     Active Substance: PAZOPANIB HYDROCHLORIDE
     Indication: PRODUCT USED FOR UNKNOWN INDICATION
     Dosage: 800 MG, QD
     Route: 048
     Dates: start: 20151001
  12. NADOLOL TABLET [Concomitant]
  13. CELECOXIB CAPSULE [Concomitant]
  14. DIPOTASSIUM CLORAZEPATE TABLET [Concomitant]

REACTIONS (1)
  - Nausea [Not Recovered/Not Resolved]

NARRATIVE: CASE EVENT DATE: 20151001
